FAERS Safety Report 15755790 (Version 2)
Quarter: 2019Q3

REPORT INFORMATION
  Report Type: Spontaneous
  Country: IT (occurrence: IT)
  Receive Date: 20181224
  Receipt Date: 20190706
  Transmission Date: 20191004
  Serious: Yes (Other)
  Sender: FDA-Public Use
  Company Number: IT-AUROBINDO-AUR-APL-2018-062286

PATIENT

DRUGS (5)
  1. LORAZEPAM TABLETS [Suspect]
     Active Substance: LORAZEPAM
     Dosage: 5 DF, ONCE DAILY (QD)
     Route: 064
  2. CLOZAPINE. [Suspect]
     Active Substance: CLOZAPINE
     Indication: SCHIZOPHRENIA
     Dosage: 200 MG, ONCE DAILY (QD)
     Route: 064
  3. CLOZAPINE. [Suspect]
     Active Substance: CLOZAPINE
     Dosage: 5 DOSAGE FORM, ONCE A DAY
     Route: 064
  4. CLOZAPINE. [Suspect]
     Active Substance: CLOZAPINE
     Dosage: 300 MG, 3X/DAY (TID)
     Route: 064
  5. LORAZEPAM TABLETS [Suspect]
     Active Substance: LORAZEPAM
     Indication: PRODUCT USED FOR UNKNOWN INDICATION
     Dosage: 2.5 MG, 3X/DAY (TID)
     Route: 064

REACTIONS (3)
  - Foetal exposure during pregnancy [Unknown]
  - Tachypnoea [Unknown]
  - Floppy infant [Unknown]
